FAERS Safety Report 16696969 (Version 2)
Quarter: 2019Q4

REPORT INFORMATION
  Report Type: Spontaneous
  Country: PR (occurrence: PR)
  Receive Date: 20190813
  Receipt Date: 20191111
  Transmission Date: 20200122
  Serious: No
  Sender: FDA-Public Use
  Company Number: PR-PFIZER INC-2019341850

PATIENT
  Age: 74 Year
  Sex: Female
  Weight: 46.26 kg

DRUGS (4)
  1. ANASTROZOLE. [Suspect]
     Active Substance: ANASTROZOLE
     Dosage: 1 MG, UNK
  2. IBRANCE [Suspect]
     Active Substance: PALBOCICLIB
     Indication: BREAST CANCER FEMALE
     Dosage: 125 MG, CYCLIC [21 DAYS, 7 DAYS OFF]
     Route: 048
     Dates: start: 20190507
  3. FASLODEX [Suspect]
     Active Substance: FULVESTRANT
     Dosage: UNK
  4. IBRANCE [Suspect]
     Active Substance: PALBOCICLIB
     Dosage: 125 MG, CYCLIC [21 DAYS, 7 DAYS OFF]
     Route: 048
     Dates: start: 20190705

REACTIONS (2)
  - Alopecia [Not Recovered/Not Resolved]
  - Oedema peripheral [Not Recovered/Not Resolved]
